FAERS Safety Report 4733555-8 (Version None)
Quarter: 2005Q3

REPORT INFORMATION
  Report Type: 
  Country: None (occurrence: None)
  Receive Date: 20050803
  Receipt Date: 20050510
  Transmission Date: 20060218
  Serious: Yes (Other)
  Sender: FDA-Public Use
  Company Number: PHBS2005JP06784

PATIENT

DRUGS (2)
  1. DIOVAN [Suspect]
     Route: 048
  2. PABURON [Concomitant]
     Indication: NASOPHARYNGITIS
     Route: 065

REACTIONS (1)
  - HEPATIC FUNCTION ABNORMAL [None]
